FAERS Safety Report 22799373 (Version 9)
Quarter: 2024Q3

REPORT INFORMATION
  Report Type: Spontaneous
  Country: US (occurrence: US)
  Receive Date: 20230808
  Receipt Date: 20240919
  Transmission Date: 20241016
  Serious: Yes (Hospitalization, Disabling, Other)
  Sender: PFIZER
  Company Number: US-PFIZER INC-PV202300135988

PATIENT
  Age: 59 Year
  Sex: Female

DRUGS (3)
  1. LORBRENA [Suspect]
     Active Substance: LORLATINIB
     Indication: Non-small cell lung cancer metastatic
     Dosage: 25 MG
  2. LORBRENA [Suspect]
     Active Substance: LORLATINIB
     Dosage: 50 MG, DAILY
     Route: 048
  3. LORBRENA [Suspect]
     Active Substance: LORLATINIB
     Dosage: TAKE 1 TAB PO (PER ORAL) BID (TWICE A DAY)/ 1 TABLET ORALLY 2 TIMES PER DAY
     Route: 048

REACTIONS (8)
  - Pain [Unknown]
  - Near death experience [Unknown]
  - Pneumonectomy [Unknown]
  - Blindness unilateral [Unknown]
  - Seizure [Unknown]
  - Impaired work ability [Unknown]
  - Neoplasm progression [Unknown]
  - Off label use [Unknown]
